FAERS Safety Report 9271645 (Version 1)
Quarter: 2013Q2

REPORT INFORMATION
  Report Type: Report from Study
  Country: US (occurrence: US)
  Receive Date: 20130506
  Receipt Date: 20130506
  Transmission Date: 20140414
  Serious: Yes (Hospitalization, Other)
  Sender: FDA-Public Use
  Company Number: US-JNJFOC-20130500162

PATIENT
  Age: 26 Year
  Sex: Female

DRUGS (1)
  1. REMICADE [Suspect]
     Indication: CROHN^S DISEASE
     Dosage: FREQUENCY 7 TO 8 WEEKS
     Route: 042

REACTIONS (7)
  - Premature rupture of membranes [Recovered/Resolved]
  - Intestinal obstruction [Unknown]
  - Dehydration [Unknown]
  - Arthritis [Unknown]
  - Exposure during pregnancy [Recovered/Resolved]
  - Crohn^s disease [Recovering/Resolving]
  - Dysmorphism [Unknown]
